FAERS Safety Report 9478854 (Version 2)
Quarter: 2014Q1

REPORT INFORMATION
  Report Type: Spontaneous
  Country: US (occurrence: US)
  Receive Date: 20130827
  Receipt Date: 20140213
  Transmission Date: 20141002
  Serious: Yes (Hospitalization, Disabling, Other)
  Sender: FDA-Public Use
  Company Number: US-TEVA-428598USA

PATIENT
  Sex: Female

DRUGS (6)
  1. METOCLOPRAMIDE [Suspect]
     Indication: IMPAIRED GASTRIC EMPTYING
  2. METOCLOPRAMIDE [Suspect]
     Indication: GASTROOESOPHAGEAL REFLUX DISEASE
  3. METOCLOPRAMIDE [Suspect]
     Indication: IMPAIRED GASTRIC EMPTYING
  4. REGLAN [Suspect]
     Indication: IMPAIRED GASTRIC EMPTYING
  5. REGLAN [Suspect]
     Indication: GASTROOESOPHAGEAL REFLUX DISEASE
  6. REGLAN [Suspect]
     Indication: IMPAIRED GASTRIC EMPTYING

REACTIONS (14)
  - Tardive dyskinesia [Unknown]
  - Tardive dyskinesia [Unknown]
  - Nervous system disorder [Unknown]
  - Extrapyramidal disorder [Unknown]
  - Dyskinesia [Unknown]
  - Dyskinesia [Unknown]
  - Activities of daily living impaired [Unknown]
  - Oral disorder [Unknown]
  - Dysphagia [Unknown]
  - Speech disorder [Unknown]
  - Disease progression [Unknown]
  - Essential tremor [Unknown]
  - Movement disorder [Unknown]
  - Dyskinesia [Unknown]
